FAERS Safety Report 10583080 (Version 1)
Quarter: 2014Q4

REPORT INFORMATION
  Report Type: Report from Study
  Country: GB (occurrence: GB)
  Receive Date: 20141114
  Receipt Date: 20141114
  Transmission Date: 20150529
  Serious: Yes (Death)
  Sender: FDA-Public Use
  Company Number: GB-ROCHE-1490795

PATIENT
  Age: 30 Year
  Sex: Male

DRUGS (3)
  1. CAPECITABINE. [Suspect]
     Active Substance: CAPECITABINE
     Indication: RECTAL CANCER
     Route: 048
     Dates: end: 20131121
  2. DISODIUM PAMIDRONATE [Concomitant]
     Indication: RECTAL CANCER
     Route: 042
     Dates: end: 20131121
  3. MITOMYCIN. [Concomitant]
     Active Substance: MITOMYCIN
     Indication: RECTAL CANCER
     Route: 042
     Dates: end: 20131121

REACTIONS (1)
  - Death [Fatal]
